FAERS Safety Report 19283811 (Version 1)
Quarter: 2021Q2

REPORT INFORMATION
  Report Type: Report from Study
  Country: None (occurrence: US)
  Receive Date: 20210520
  Receipt Date: 20210520
  Transmission Date: 20210717
  Serious: Yes (Hospitalization)
  Sender: FDA-Public Use
  Company Number: US-ABBVIE-21K-163-3910959-00

PATIENT
  Sex: Female

DRUGS (2)
  1. DUOPA [Suspect]
     Active Substance: CARBIDOPA\LEVODOPA
  2. DUOPA [Suspect]
     Active Substance: CARBIDOPA\LEVODOPA
     Indication: PARKINSON^S DISEASE
     Dosage: STRENGTH 4.63 ? 20 MG, DAILY DOSE : 4.63 ? 20 MG
     Route: 050
     Dates: start: 20210429, end: 2021

REACTIONS (5)
  - Tremor [Unknown]
  - Unintentional medical device removal [Unknown]
  - Dementia [Unknown]
  - Fall [Unknown]
  - Parkinson^s disease [Unknown]
